FAERS Safety Report 21248636 (Version 1)
Quarter: 2022Q3

REPORT INFORMATION
  Report Type: Spontaneous
  Country: BR (occurrence: BR)
  Receive Date: 20220824
  Receipt Date: 20220824
  Transmission Date: 20221027
  Serious: Yes (Death, Hospitalization, Other)
  Sender: FDA-Public Use
  Company Number: BR-PFIZER INC-2019326433

PATIENT
  Age: 61 Year
  Sex: Male
  Weight: 65 kg

DRUGS (2)
  1. SUTENT [Suspect]
     Active Substance: SUNITINIB MALATE
     Indication: Neoplasm malignant
     Dosage: 2 WEEKS AND STOPPED FOR 2 WEEKS
     Dates: start: 201902, end: 202102
  2. SUTENT [Suspect]
     Active Substance: SUNITINIB MALATE
     Dosage: ONE WEEK AND STOPPED FOR TWO WEEKS
     Dates: start: 202102, end: 20210827

REACTIONS (15)
  - Neoplasm progression [Fatal]
  - Syncope [Unknown]
  - Stomatitis [Not Recovered/Not Resolved]
  - Aphthous ulcer [Not Recovered/Not Resolved]
  - Dry skin [Not Recovered/Not Resolved]
  - Ageusia [Not Recovered/Not Resolved]
  - Memory impairment [Unknown]
  - Gait disturbance [Unknown]
  - Urinary incontinence [Unknown]
  - Aphasia [Unknown]
  - Taste disorder [Unknown]
  - Weight decreased [Unknown]
  - Eating disorder [Unknown]
  - Vomiting [Unknown]
  - Inappropriate schedule of product administration [Unknown]

NARRATIVE: CASE EVENT DATE: 20190201
